FAERS Safety Report 13316884 (Version 1)
Quarter: 2017Q1

REPORT INFORMATION
  Report Type: Report from Study
  Country: CA (occurrence: CA)
  Receive Date: 20170310
  Receipt Date: 20170310
  Transmission Date: 20170428
  Serious: Yes (Hospitalization, Other)
  Sender: FDA-Public Use
  Company Number: CA-ROCHE-1695091

PATIENT
  Age: 67 Year
  Sex: Female
  Weight: 79.1 kg

DRUGS (13)
  1. ACTEMRA [Suspect]
     Active Substance: TOCILIZUMAB
     Indication: RHEUMATOID ARTHRITIS
     Dosage: LAST DOSE 02/DEC/2016
     Route: 042
     Dates: start: 20151221
  2. AMLODIPINE [Concomitant]
     Active Substance: AMLODIPINE BESYLATE
  3. ACETYLSALICYLIC ACID [Concomitant]
     Active Substance: ASPIRIN
     Route: 065
  4. ATORVASTATIN [Concomitant]
     Active Substance: ATORVASTATIN
  5. LEVOTHYROXINE. [Concomitant]
     Active Substance: LEVOTHYROXINE
  6. ATENOLOL. [Concomitant]
     Active Substance: ATENOLOL
  7. CLONAZEPAM. [Concomitant]
     Active Substance: CLONAZEPAM
  8. HYDROMORPHONE [Concomitant]
     Active Substance: HYDROMORPHONE
  9. OXYBUTYNIN [Concomitant]
     Active Substance: OXYBUTYNIN
  10. PREDNISONE. [Concomitant]
     Active Substance: PREDNISONE
  11. LASIX [Concomitant]
     Active Substance: FUROSEMIDE
  12. METFORMIN [Concomitant]
     Active Substance: METFORMIN HYDROCHLORIDE
  13. PANTOPRAZOLE [Concomitant]
     Active Substance: PANTOPRAZOLE SODIUM

REACTIONS (14)
  - Myocardial infarction [Unknown]
  - Pain [Unknown]
  - Cough [Not Recovered/Not Resolved]
  - Skin ulcer [Not Recovered/Not Resolved]
  - Skin ulcer [Recovering/Resolving]
  - Arthralgia [Unknown]
  - Blood pressure increased [Unknown]
  - Heart rate decreased [Unknown]
  - Pneumonia [Unknown]
  - Weight fluctuation [Not Recovered/Not Resolved]
  - Rash [Recovered/Resolved]
  - Gastroenteritis viral [Not Recovered/Not Resolved]
  - Pneumonia [Recovered/Resolved]
  - Blood pressure systolic increased [Unknown]

NARRATIVE: CASE EVENT DATE: 2016
